FAERS Safety Report 5481994-2 (Version None)
Quarter: 2007Q4

REPORT INFORMATION
  Report Type: 
  Country: None (occurrence: None)
  Receive Date: 20071005
  Receipt Date: 20070924
  Transmission Date: 20080405
  Serious: Yes (Hospitalization)
  Sender: FDA-Public Use
  Company Number: 2007US002295

PATIENT
  Age: 54 Year
  Sex: Female

DRUGS (3)
  1. PROGRAF [Suspect]
     Indication: RENAL TRANSPLANT
     Dosage: 3 MG, BID, ORAL
     Route: 048
     Dates: start: 20050908
  2. MYCOPHENOLATE MOFETIL [Suspect]
     Indication: RENAL TRANSPLANT
     Dosage: 1000 MG, BID, ORAL
     Route: 048
     Dates: start: 20050829, end: 20050930
  3. METHYLPREDNISOLONE [Suspect]
     Indication: RENAL TRANSPLANT
     Dosage: 125 MG, IV NOS
     Route: 042
     Dates: start: 20050830

REACTIONS (1)
  - COMPLICATIONS OF TRANSPLANTED KIDNEY [None]
